FAERS Safety Report 4525021-X (Version None)
Quarter: 2004Q4

REPORT INFORMATION
  Report Type: 
  Country: None (occurrence: None)
  Receive Date: 20041210
  Receipt Date: 20041207
  Transmission Date: 20050328
  Serious: Yes (Death)
  Sender: FDA-Public Use
  Company Number: 04-12-1690

PATIENT
  Age: 65 Year
  Sex: Female

DRUGS (2)
  1. CLOZAPINE [Suspect]
     Indication: DEMENTIA
     Dosage: 100-550MG QD ORAL
     Route: 048
     Dates: start: 19990901, end: 20041101
  2. CLOZAPINE [Suspect]
     Indication: PSYCHOTIC DISORDER
     Dosage: 100-550MG QD ORAL
     Route: 048
     Dates: start: 19990901, end: 20041101

REACTIONS (1)
  - PANCREATIC CARCINOMA [None]
